FAERS Safety Report 9908994 (Version 1)
Quarter: 2014Q1

REPORT INFORMATION
  Report Type: Spontaneous
  Country: CH (occurrence: CH)
  Receive Date: 20140219
  Receipt Date: 20140219
  Transmission Date: 20141002
  Serious: Yes (Other)
  Sender: FDA-Public Use
  Company Number: CH-JNJFOC-20140206858

PATIENT
  Age: 20 Year
  Sex: Female

DRUGS (4)
  1. RISPERDAL CONSTA [Suspect]
     Indication: SCHIZOAFFECTIVE DISORDER
     Route: 030
  2. RISPERDAL CONSTA [Suspect]
     Indication: SCHIZOAFFECTIVE DISORDER
     Route: 030
     Dates: start: 20131127
  3. VALPROATE SODIUM [Concomitant]
     Indication: DRUG THERAPY
     Dosage: DURATION OF USE: LONG TERM
     Route: 048
  4. AZATHIOPRINE [Concomitant]
     Indication: CROHN^S DISEASE
     Dosage: DURATION OF USE: LONG TERM
     Route: 048

REACTIONS (2)
  - Accidental overdose [Not Recovered/Not Resolved]
  - Sedation [Not Recovered/Not Resolved]
